FAERS Safety Report 10511031 (Version 17)
Quarter: 2018Q1

REPORT INFORMATION
  Report Type: Spontaneous
  Country: US (occurrence: US)
  Receive Date: 20141010
  Receipt Date: 20180129
  Transmission Date: 20180508
  Serious: No
  Sender: FDA-Public Use
  Company Number: US-PFIZER INC-2014276995

PATIENT
  Age: 58 Year
  Sex: Female
  Weight: 125 kg

DRUGS (8)
  1. LYRICA [Suspect]
     Active Substance: PREGABALIN
     Dosage: 200 MG, 3X/DAY
  2. HYDROCHLOROTHIAZIDE. [Concomitant]
     Active Substance: HYDROCHLOROTHIAZIDE
     Dosage: 50 MG, DAILY
     Route: 048
  3. GEMFIBROZIL. [Concomitant]
     Active Substance: GEMFIBROZIL
     Dosage: 600 MG, 2X/DAY
     Route: 048
  4. METOPROLOL TARTRATE. [Concomitant]
     Active Substance: METOPROLOL TARTRATE
     Dosage: 100 MG, 2X/DAY
     Route: 048
  5. LYRICA [Suspect]
     Active Substance: PREGABALIN
     Dosage: 100 MG, 3X/DAY (EVERY 8 HOURS AROUND THE CLOCK)
     Route: 048
  6. LYRICA [Suspect]
     Active Substance: PREGABALIN
     Indication: DIABETIC NEUROPATHY
     Dosage: 100 MG, 3X/DAY
     Dates: start: 20140808
  7. LYRICA [Suspect]
     Active Substance: PREGABALIN
     Dosage: 300 MG, 2X/DAY
  8. GLUCOVANCE [Concomitant]
     Active Substance: GLYBURIDE\METFORMIN HYDROCHLORIDE
     Dosage: 1 DF, 2X/DAY  [GLIBENCLAMIDE 2.5 MG]/[METFORMIN HYDROCHLORIDE 500 MG]
     Route: 048

REACTIONS (15)
  - Therapeutic response unexpected [Unknown]
  - Blood pressure increased [Unknown]
  - Pain in extremity [Unknown]
  - Somnolence [Unknown]
  - Blood pressure decreased [Unknown]
  - Fluid retention [Unknown]
  - Increased appetite [Not Recovered/Not Resolved]
  - Prescribed overdose [Unknown]
  - Blister [Unknown]
  - Weight increased [Unknown]
  - Intentional product misuse [Unknown]
  - Lymphoedema [Unknown]
  - Insomnia [Unknown]
  - Drug effect incomplete [Unknown]
  - Anxiety [Unknown]

NARRATIVE: CASE EVENT DATE: 20140901
